FAERS Safety Report 15765067 (Version 2)
Quarter: 2019Q1

REPORT INFORMATION
  Report Type: Spontaneous
  Country: US (occurrence: US)
  Receive Date: 20181227
  Receipt Date: 20190102
  Transmission Date: 20190417
  Serious: No
  Sender: FDA-Public Use
  Company Number: US-PCCINC-2018-PEL-003469

PATIENT

DRUGS (6)
  1. GABLOFEN [Suspect]
     Active Substance: BACLOFEN
     Dosage: UNK
     Route: 037
     Dates: start: 20180524
  2. GABLOFEN [Suspect]
     Active Substance: BACLOFEN
     Indication: MUSCLE SPASTICITY
     Dosage: (UNK CONCENTRATION)
     Route: 037
     Dates: start: 2011
  3. GABLOFEN [Suspect]
     Active Substance: BACLOFEN
     Dosage: 1400 ?G, QD
     Route: 037
  4. GABLOFEN [Suspect]
     Active Substance: BACLOFEN
     Indication: PARAPARESIS
     Dosage: 424 ?G, QD
     Route: 037
  5. LIORESAL [Suspect]
     Active Substance: BACLOFEN
     Indication: MUSCLE SPASTICITY
     Dosage: UNK
     Route: 037
     Dates: start: 2011
  6. LIORESAL [Suspect]
     Active Substance: BACLOFEN
     Indication: PARAPARESIS

REACTIONS (2)
  - Muscle spasticity [Unknown]
  - Drug ineffective [Unknown]
